FAERS Safety Report 8699454 (Version 2)
Quarter: 2013Q3

REPORT INFORMATION
  Report Type: Spontaneous
  Country: US (occurrence: US)
  Receive Date: 20120802
  Receipt Date: 20130819
  Transmission Date: 20140515
  Serious: No
  Sender: FDA-Public Use
  Company Number: US-BRISTOL-MYERS SQUIBB COMPANY-16481574

PATIENT
  Age: 48 Year
  Sex: Male

DRUGS (9)
  1. REYATAZ [Suspect]
     Dosage: MARCH HAD TWICE DAILY
     Dates: start: 201202
  2. ISENTRESS [Concomitant]
  3. NORVIR [Concomitant]
  4. TRUVADA [Concomitant]
  5. VIREAD [Concomitant]
  6. VIRAMUNE [Concomitant]
     Dosage: VIRAMUNE XR
  7. VIAGRA [Concomitant]
  8. BACTRIM [Concomitant]
  9. FLUTICASONE [Concomitant]
     Dosage: NASAL SPRAY.
     Route: 045

REACTIONS (1)
  - Incorrect dose administered [Unknown]
